FAERS Safety Report 9918745 (Version 1)
Quarter: 2014Q1

REPORT INFORMATION
  Report Type: Spontaneous
  Country: GR (occurrence: GR)
  Receive Date: 20140224
  Receipt Date: 20140224
  Transmission Date: 20141002
  Serious: Yes (Hospitalization)
  Sender: FDA-Public Use
  Company Number: GR-SUN PHARMACEUTICAL INDUSTRIES LTD-2014SUN00324

PATIENT
  Age: 47 Year
  Sex: Female

DRUGS (7)
  1. VENLAFAXINE HYDROCHLORIDE EXTENDED- RELEASE TABS 150MG [Suspect]
     Indication: PRODUCT USED FOR UNKNOWN INDICATION
     Dosage: 300 MG, BID
     Route: 065
  2. VENLAFAXINE HYDROCHLORIDE EXTENDED- RELEASE TABS 150MG [Suspect]
     Dosage: 75 MG, QD
     Route: 065
  3. QUETIAPINE [Suspect]
     Indication: INSOMNIA
     Dosage: 150 MG, QD (BED TIME)
     Route: 065
  4. QUETIAPINE [Suspect]
     Indication: AGITATION
  5. QUETIAPINE [Suspect]
     Indication: IRRITABILITY
  6. VALPROATE [Concomitant]
     Dosage: 1.5 G, UNK
  7. TOPIRAMATE [Concomitant]
     Dosage: 100 MG, QD
     Route: 065

REACTIONS (1)
  - Restless legs syndrome [Recovered/Resolved]
